FAERS Safety Report 9343007 (Version 2)
Quarter: 2014Q1

REPORT INFORMATION
  Report Type: Spontaneous
  Country: US (occurrence: US)
  Receive Date: 20130611
  Receipt Date: 20140130
  Transmission Date: 20141002
  Serious: Yes (Hospitalization)
  Sender: FDA-Public Use
  Company Number: US-B.I. PHARMACEUTICALS,INC./RIDGEFIELD-2013-BI-16105BP

PATIENT
  Sex: Female

DRUGS (11)
  1. PRADAXA [Suspect]
     Indication: CEREBROVASCULAR ACCIDENT PROPHYLAXIS
     Dates: start: 20110330, end: 20111123
  2. PRADAXA [Suspect]
     Indication: THROMBOSIS PROPHYLAXIS
  3. PRADAXA [Suspect]
     Indication: ATRIAL FIBRILLATION
  4. ACTOS [Concomitant]
     Dosage: 15 MG
  5. ARICEPT [Concomitant]
     Dosage: 5 MG
  6. CARDIZEM [Concomitant]
     Dosage: 360 MG
  7. COZAAR [Concomitant]
     Dosage: 50 MG
  8. GLUCOPHAGE [Concomitant]
     Dosage: 500 MG
  9. HYDROCHLOROTHIAZIDE [Concomitant]
     Dosage: 25 MG
  10. LIPITOR [Concomitant]
     Dosage: 40 MG
  11. POTASSIUM CHLORIDE [Concomitant]
     Dosage: 20 MEQ

REACTIONS (2)
  - Lower gastrointestinal haemorrhage [Unknown]
  - Haemorrhagic anaemia [Unknown]
